FAERS Safety Report 22864610 (Version 2)
Quarter: 2023Q4

REPORT INFORMATION
  Report Type: Spontaneous
  Country: US (occurrence: US)
  Receive Date: 20230825
  Receipt Date: 20231116
  Transmission Date: 20240110
  Serious: Yes (Other)
  Sender: FDA-Public Use
  Company Number: US-ABBVIE-5381441

PATIENT
  Sex: Male

DRUGS (1)
  1. VUITY [Suspect]
     Active Substance: PILOCARPINE HYDROCHLORIDE
     Indication: Product used for unknown indication
     Dosage: DOSAGE: 1.25 MG/ML ONE DROP ON BOTH EYES
     Route: 047
     Dates: start: 2022

REACTIONS (2)
  - Eye disorder [Unknown]
  - Photopsia [Unknown]

NARRATIVE: CASE EVENT DATE: 20220101
